FAERS Safety Report 5599213-5 (Version None)
Quarter: 2008Q1

REPORT INFORMATION
  Report Type: 
  Country: None (occurrence: None)
  Receive Date: 20080122
  Receipt Date: 20080117
  Transmission Date: 20080703
  Serious: Yes (Hospitalization)
  Sender: FDA-Public Use
  Company Number: FR-MERCK-0801FRA00061

PATIENT
  Age: 74 Year
  Sex: Female
  Weight: 71 kg

DRUGS (11)
  1. COZAAR [Suspect]
     Indication: HYPERTENSION
     Route: 048
     Dates: end: 20070917
  2. KETOPROFEN [Suspect]
     Indication: BACK PAIN
     Route: 048
     Dates: start: 20070914, end: 20070915
  3. FUROSEMIDE [Suspect]
     Indication: HYPERTENSION
     Route: 048
     Dates: end: 20070915
  4. METFORMIN HYDROCHLORIDE [Concomitant]
     Route: 048
     Dates: end: 20070916
  5. INSULIN GLARGINE [Concomitant]
     Route: 058
     Dates: end: 20070917
  6. GLYBURIDE [Concomitant]
     Indication: TYPE 2 DIABETES MELLITUS
     Route: 048
     Dates: end: 20070915
  7. WARFARIN SODIUM [Concomitant]
     Route: 048
     Dates: end: 20070917
  8. ACETAMINOPHEN [Concomitant]
     Route: 048
     Dates: start: 20070912
  9. PANTOPRAZOLE SODIUM [Concomitant]
     Route: 048
     Dates: start: 20070914
  10. ALVERINE CITRATE AND METHIONINE [Concomitant]
     Indication: DIARRHOEA
     Route: 048
     Dates: start: 20070912, end: 20070915
  11. RACECADOTRIL [Concomitant]
     Indication: DIARRHOEA
     Route: 048
     Dates: start: 20070912

REACTIONS (2)
  - DRUG INTERACTION [None]
  - RENAL FAILURE ACUTE [None]
